FAERS Safety Report 8876912 (Version 2)
Quarter: 2013Q2

REPORT INFORMATION
  Report Type: Spontaneous
  Country: US (occurrence: None)
  Receive Date: 20120426
  Receipt Date: 20120703
  Transmission Date: 20140414
  Serious: Yes (Other)
  Sender: FDA-Public Use
  Company Number: PHEH2012US003592

PATIENT
  Age: 44 Year
  Sex: Female

DRUGS (5)
  1. GILENYA [Suspect]
     Indication: MULTIPLE SCLEROSIS
     Route: 048
     Dates: start: 20110912
  2. SYNTHROID (LEVOTHYROXINE SODIUM) [Concomitant]
  3. HYDROCHLOROTHIAZIDE (HYDROCHLOROTHIAZIDE) [Concomitant]
  4. PROPRANOLOL (PROPRANOLOL) [Concomitant]
  5. FIORICET (BUTALBITAL, CAFFEINE, PARACERTAMOL) [Concomitant]

REACTIONS (5)
  - Blood pressure decreased [None]
  - Blood thyroid stimulating hormone increased [None]
  - Cough [None]
  - Infection [None]
  - Dizziness [None]
